FAERS Safety Report 12474955 (Version 1)
Quarter: 2016Q2

REPORT INFORMATION
  Report Type: Spontaneous
  Country: US (occurrence: None)
  Receive Date: 20160616
  Receipt Date: 20160616
  Transmission Date: 20160815
  Serious: No
  Sender: FDA-Public Use
  Company Number: None

PATIENT
  Sex: Male

DRUGS (1)
  1. GLATOPA [Suspect]
     Active Substance: GLATIRAMER ACETATE
     Indication: MULTIPLE SCLEROSIS
     Dosage: 09?172016 TO CURRENT 20MG ONCE DAILY SUBCUTANEOUSLY
     Route: 058

REACTIONS (2)
  - Oropharyngeal pain [None]
  - Abdominal pain upper [None]
